FAERS Safety Report 8215172-0 (Version None)
Quarter: 2012Q1

REPORT INFORMATION
  Report Type: 
  Country: None (occurrence: None)
  Receive Date: 20120316
  Receipt Date: 20120315
  Transmission Date: 20120608
  Serious: Yes (Hospitalization)
  Sender: FDA-Public Use
  Company Number: JP-ABBOTT-12P-087-0910193-00

PATIENT
  Age: 65 Year
  Sex: Male

DRUGS (6)
  1. CLARITHROMYCIN [Suspect]
     Indication: PROPHYLAXIS
  2. AMOXICILLIN [Suspect]
     Indication: HELICOBACTER INFECTION
  3. CLARITHROMYCIN [Suspect]
     Indication: HELICOBACTER INFECTION
  4. RABEPRAZOLE SODIUM [Suspect]
     Indication: HELICOBACTER INFECTION
  5. RABEPRAZOLE SODIUM [Suspect]
     Indication: PROPHYLAXIS
  6. AMOXICILLIN [Suspect]
     Indication: PROPHYLAXIS

REACTIONS (1)
  - PSEUDOMEMBRANOUS COLITIS [None]
